FAERS Safety Report 7290763-2 (Version None)
Quarter: 2011Q1

REPORT INFORMATION
  Report Type: 
  Country: None (occurrence: None)
  Receive Date: 20110214
  Receipt Date: 20110131
  Transmission Date: 20110831
  Serious: Yes (Hospitalization)
  Sender: FDA-Public Use
  Company Number: US-ROCHE-752606

PATIENT
  Sex: Female
  Weight: 64 kg

DRUGS (4)
  1. BONIVA [Suspect]
     Indication: OSTEOPOROSIS
     Dosage: DOSE: 3 MG/ML
     Route: 042
     Dates: start: 20090101, end: 20100930
  2. ELAVIL [Concomitant]
     Route: 048
  3. SYNTHROID [Concomitant]
     Indication: HYPOTHYROIDISM
     Route: 048
  4. ZETIA [Concomitant]
     Route: 048

REACTIONS (1)
  - THROMBOPHLEBITIS SUPERFICIAL [None]
